FAERS Safety Report 13245447 (Version 2)
Quarter: 2017Q1

REPORT INFORMATION
  Report Type: Spontaneous
  Country: US (occurrence: US)
  Receive Date: 20170217
  Receipt Date: 20170224
  Transmission Date: 20170428
  Serious: Yes (Other)
  Sender: FDA-Public Use
  Company Number: US-GE HEALTHCARE LIFE SCIENCES-2017CSU000032

PATIENT
  Age: 80 Year
  Sex: Female

DRUGS (8)
  1. CARVEDILOL. [Concomitant]
     Active Substance: CARVEDILOL
  2. LEVOTHYROXINE. [Concomitant]
     Active Substance: LEVOTHYROXINE
  3. PREGABALIN. [Concomitant]
     Active Substance: PREGABALIN
  4. OMNIPAQUE [Suspect]
     Active Substance: IOHEXOL
     Indication: BACK PAIN
     Dosage: 12 ML, SINGLE
     Route: 037
  5. FUROSEMIDE. [Concomitant]
     Active Substance: FUROSEMIDE
  6. APIXABAN [Concomitant]
     Active Substance: APIXABAN
     Indication: ATRIAL FIBRILLATION
     Dosage: 5 MG, QD
  7. LIDOCAINE. [Concomitant]
     Active Substance: LIDOCAINE
     Route: 058
  8. LOSARTAN. [Concomitant]
     Active Substance: LOSARTAN

REACTIONS (1)
  - Brain oedema [Recovered/Resolved]
